FAERS Safety Report 6512436-3 (Version None)
Quarter: 2009Q4

REPORT INFORMATION
  Report Type: 
  Country: None (occurrence: None)
  Receive Date: 20091222
  Receipt Date: 20090930
  Transmission Date: 20100525
  Serious: No
  Sender: FDA-Public Use
  Company Number: US-ASTRAZENECA-2009SE16792

PATIENT
  Age: 87 Year
  Sex: Female
  Weight: 58.1 kg

DRUGS (3)
  1. CRESTOR [Suspect]
     Indication: BLOOD CHOLESTEROL INCREASED
     Route: 048
     Dates: start: 20090629, end: 20090923
  2. ASPIRIN [Concomitant]
  3. TYLENOL (CAPLET) [Concomitant]

REACTIONS (4)
  - HYPERHIDROSIS [None]
  - MUSCULOSKELETAL DISCOMFORT [None]
  - MYALGIA [None]
  - PYREXIA [None]
